FAERS Safety Report 16236705 (Version 1)
Quarter: 2019Q2

REPORT INFORMATION
  Report Type: Spontaneous
  Country: DE (occurrence: DE)
  Receive Date: 20190425
  Receipt Date: 20190425
  Transmission Date: 20190711
  Serious: Yes (Hospitalization)
  Sender: FDA-Public Use
  Company Number: DE-SUN PHARMACEUTICAL INDUSTRIES LTD-2019RR-206071

PATIENT
  Age: 46 Year
  Sex: Female
  Weight: 90 kg

DRUGS (2)
  1. CIPRO [Suspect]
     Active Substance: CIPROFLOXACIN HYDROCHLORIDE
     Indication: ENTERITIS INFECTIOUS
     Dosage: 500 MILLIGRAM, BID, (2 MAL TGL. 1 TABLETTE)
     Route: 048
     Dates: start: 20151013, end: 20151018
  2. CIPRO [Suspect]
     Active Substance: CIPROFLOXACIN HYDROCHLORIDE
     Dosage: 500 MILLIGRAM, BID, (1-0-1)
     Route: 048
     Dates: start: 201807

REACTIONS (18)
  - Impaired work ability [Recovered/Resolved]
  - Pain [Unknown]
  - Gait disturbance [Recovered/Resolved with Sequelae]
  - Muscle spasms [Unknown]
  - Dizziness [Recovered/Resolved with Sequelae]
  - Muscular weakness [Recovered/Resolved with Sequelae]
  - Fatigue [Recovered/Resolved with Sequelae]
  - Pain [Recovered/Resolved with Sequelae]
  - Muscle spasms [Not Recovered/Not Resolved]
  - Disturbance in attention [Recovered/Resolved with Sequelae]
  - Depressed mood [Not Recovered/Not Resolved]
  - Muscle twitching [Not Recovered/Not Resolved]
  - Plantar fasciitis [Not Recovered/Not Resolved]
  - Asthenia [Recovered/Resolved with Sequelae]
  - Musculoskeletal discomfort [Unknown]
  - Pain [Unknown]
  - Impaired work ability [Unknown]
  - Motor dysfunction [Unknown]

NARRATIVE: CASE EVENT DATE: 20160101
